FAERS Safety Report 15396041 (Version 1)
Quarter: 2018Q3

REPORT INFORMATION
  Report Type: Spontaneous
  Country: US (occurrence: US)
  Receive Date: 20180911
  Receipt Date: 20180911
  Transmission Date: 20181010
  Serious: No
  Sender: FDA-Public Use
  Company Number: None

PATIENT
  Age: 37 Year
  Sex: Female

DRUGS (1)
  1. HARVONI [Suspect]
     Active Substance: LEDIPASVIR\SOFOSBUVIR
     Indication: HEPATITIS C
     Dates: start: 201808

REACTIONS (4)
  - Drug dose omission [None]
  - Lipoma excision [None]
  - Blood pressure increased [None]
  - Energy increased [None]

NARRATIVE: CASE EVENT DATE: 20180911
